FAERS Safety Report 18298120 (Version 2)
Quarter: 2020Q4

REPORT INFORMATION
  Report Type: Report from Study
  Country: US (occurrence: US)
  Receive Date: 20200922
  Receipt Date: 20201008
  Transmission Date: 20210113
  Serious: Yes (Hospitalization)
  Sender: FDA-Public Use
  Company Number: US-EXELIXIS-CABO-20033033

PATIENT
  Sex: Male

DRUGS (4)
  1. CABOMETYX [Suspect]
     Active Substance: CABOZANTINIB S-MALATE
     Dosage: 40 MG, QD
     Dates: start: 20200921
  2. PREDNISONE. [Concomitant]
     Active Substance: PREDNISONE
  3. LACTULOSE. [Concomitant]
     Active Substance: LACTULOSE
  4. CABOMETYX [Suspect]
     Active Substance: CABOZANTINIB S-MALATE
     Indication: HEPATOCELLULAR CARCINOMA
     Dosage: 40 MG, QD
     Dates: start: 20200822, end: 20200916

REACTIONS (7)
  - Dehydration [Recovering/Resolving]
  - Feeling abnormal [Unknown]
  - Ammonia increased [Recovering/Resolving]
  - Thyroid hormones decreased [Unknown]
  - Dysphonia [Unknown]
  - Insomnia [Unknown]
  - Oedema peripheral [Unknown]
